FAERS Safety Report 8505769-2 (Version None)
Quarter: 2012Q3

REPORT INFORMATION
  Report Type: 
  Country: None (occurrence: None)
  Receive Date: 20120712
  Receipt Date: 20120629
  Transmission Date: 20120928
  Serious: Yes (Hospitalization, Other)
  Sender: FDA-Public Use
  Company Number: NL-AMGEN-NLDSP2012041880

PATIENT
  Sex: Male

DRUGS (9)
  1. NEBIVOLOL HCL [Concomitant]
     Dosage: UNK
  2. DEPAKENE [Concomitant]
     Dosage: UNK
  3. METAMUCIL-2 [Concomitant]
     Dosage: UNK
  4. ENBREL [Suspect]
     Indication: RHEUMATOID ARTHRITIS
     Dosage: 50 MG, WEEKLY
     Dates: start: 20101224
  5. PANTOPRAZOLE [Concomitant]
     Dosage: UNK
  6. CRESTOR [Concomitant]
     Dosage: UNK
  7. ACETAMINOPHEN [Concomitant]
     Dosage: UNK
  8. TRIAMTERENE W/EPITIZIDE [Concomitant]
     Dosage: UNK
  9. ALLOPURINOL [Concomitant]
     Dosage: UNK

REACTIONS (4)
  - MUSCULOSKELETAL DISORDER [None]
  - MUSCLE RUPTURE [None]
  - TENDON RUPTURE [None]
  - JOINT CAPSULE RUPTURE [None]
